FAERS Safety Report 18263179 (Version 1)
Quarter: 2020Q3

REPORT INFORMATION
  Report Type: Spontaneous
  Country: CN (occurrence: CN)
  Receive Date: 20200914
  Receipt Date: 20200914
  Transmission Date: 20201103
  Serious: Yes (Other)
  Sender: FDA-Public Use
  Company Number: CN-BAYER-2020-194096

PATIENT
  Age: 91 Year
  Sex: Male
  Weight: 55 kg

DRUGS (1)
  1. AVELOX [Suspect]
     Active Substance: MOXIFLOXACIN HYDROCHLORIDE
     Indication: SEPSIS
     Dosage: 0.4 G, QD
     Route: 041
     Dates: start: 20200611, end: 20200613

REACTIONS (4)
  - Confusional state [Recovered/Resolved]
  - Incoherent [Recovered/Resolved]
  - Mental disorder [Recovered/Resolved]
  - Agitation [Recovered/Resolved]

NARRATIVE: CASE EVENT DATE: 20200612
